FAERS Safety Report 8049830-8 (Version None)
Quarter: 2012Q1

REPORT INFORMATION
  Report Type: 
  Country: None (occurrence: None)
  Receive Date: 20120117
  Receipt Date: 20120109
  Transmission Date: 20120608
  Serious: Yes (Hospitalization)
  Sender: FDA-Public Use
  Company Number: US-BAYER-2010-001985

PATIENT
  Age: 20 Year
  Sex: Female
  Weight: 54.422 kg

DRUGS (2)
  1. YAZ [Suspect]
     Dosage: UNK
     Dates: start: 20070301, end: 20101201
  2. YASMIN [Suspect]
     Dosage: UNK
     Dates: start: 20070301, end: 20101201

REACTIONS (2)
  - GALLBLADDER INJURY [None]
  - BILIARY DYSKINESIA [None]
